FAERS Safety Report 24527421 (Version 4)
Quarter: 2024Q4

REPORT INFORMATION
  Report Type: Report from Study
  Country: US (occurrence: US)
  Receive Date: 20241021
  Receipt Date: 20241106
  Transmission Date: 20250114
  Serious: Yes (Other)
  Sender: ABBVIE
  Company Number: US-ABBVIE-5964267

PATIENT
  Age: 66 Year
  Sex: Female

DRUGS (4)
  1. HUMIRA [Suspect]
     Active Substance: ADALIMUMAB
     Indication: Rheumatoid arthritis
     Dosage: CITRATE FREE
     Route: 058
     Dates: start: 20230221, end: 202310
  2. HUMIRA [Suspect]
     Active Substance: ADALIMUMAB
     Indication: Crohn^s disease
     Dosage: CITRATE FREE?LAST ADMIN DATE: FEB 2023
     Route: 058
     Dates: start: 20230213
  3. HUMIRA [Suspect]
     Active Substance: ADALIMUMAB
     Dosage: CITRATE FREE
     Route: 058
     Dates: end: 2018
  4. HUMIRA [Suspect]
     Active Substance: ADALIMUMAB
     Dosage: CITRATE FREE
     Route: 058
     Dates: start: 202205

REACTIONS (19)
  - Post procedural haemorrhage [Unknown]
  - Fall [Unknown]
  - Cervix carcinoma [Not Recovered/Not Resolved]
  - Adverse drug reaction [Not Recovered/Not Resolved]
  - Crohn^s disease [Not Recovered/Not Resolved]
  - Posture abnormal [Unknown]
  - Papilloma viral infection [Not Recovered/Not Resolved]
  - Knee arthroplasty [Unknown]
  - Immunosuppression [Unknown]
  - Femur fracture [Not Recovered/Not Resolved]
  - Memory impairment [Unknown]
  - Feeding disorder [Unknown]
  - Malaise [Not Recovered/Not Resolved]
  - Inflammation [Unknown]
  - Intestinal fistula [Unknown]
  - Frustration tolerance decreased [Unknown]
  - Fatigue [Unknown]
  - Fistula [Unknown]
  - Illness [Not Recovered/Not Resolved]

NARRATIVE: CASE EVENT DATE: 20231101
